FAERS Safety Report 11432329 (Version 12)
Quarter: 2017Q1

REPORT INFORMATION
  Report Type: Spontaneous
  Country: US (occurrence: US)
  Receive Date: 20150828
  Receipt Date: 20170328
  Transmission Date: 20170428
  Serious: No
  Sender: FDA-Public Use
  Company Number: US-VERTEX PHARMACEUTICALS-2015-003352

PATIENT
  Age: 17 Year
  Sex: Male
  Weight: 81 kg

DRUGS (12)
  1. ZYRTEC [Concomitant]
     Active Substance: CETIRIZINE HYDROCHLORIDE
     Dosage: 10 MG, QD
  2. PREVACID [Concomitant]
     Active Substance: LANSOPRAZOLE
     Dosage: 1 DF, BID
  3. ORKAMBI [Suspect]
     Active Substance: IVACAFTOR\LUMACAFTOR
     Indication: CYSTIC FIBROSIS
     Dosage: 400 MG/250 MG, BID WITH FAT CONTAINING FOOD
     Route: 048
     Dates: start: 20150805
  4. ADEK [Concomitant]
     Dosage: 1 DF, QD
  5. MULTIVITAMINS [Concomitant]
     Active Substance: VITAMINS
  6. HYPERSOL [Concomitant]
     Dosage: INHALED, BID
     Route: 055
  7. SYMBICORT [Concomitant]
     Active Substance: BUDESONIDE\FORMOTEROL FUMARATE DIHYDRATE
     Dosage: 2 PUFFS, QD
     Route: 048
  8. CREON [Concomitant]
     Active Substance: PANCRELIPASE AMYLASE\PANCRELIPASE LIPASE\PANCRELIPASE PROTEASE
     Dosage: 5 CAPS WITH MEALS AND SNACKS
     Route: 048
  9. VITAMIN D [Concomitant]
     Active Substance: CHOLECALCIFEROL
     Dosage: UNK IU, UNK
  10. PROBIOTIC [Concomitant]
     Active Substance: PROBIOTICS NOS
     Dosage: UNK, QD
  11. BUDESONIDE. [Concomitant]
     Active Substance: BUDESONIDE
     Dosage: 2 ML EACH NOSTRIL, QD
  12. ACIDOPHILUS [Concomitant]
     Active Substance: LACTOBACILLUS ACIDOPHILUS

REACTIONS (8)
  - Throat irritation [Unknown]
  - Rash pruritic [Unknown]
  - Abdominal pain upper [Recovered/Resolved]
  - Sinusitis [Not Recovered/Not Resolved]
  - Acne [Unknown]
  - Diarrhoea [Unknown]
  - Asthma [Unknown]
  - Dyspepsia [Unknown]

NARRATIVE: CASE EVENT DATE: 201508
